FAERS Safety Report 15308000 (Version 1)
Quarter: 2018Q3

REPORT INFORMATION
  Report Type: Spontaneous
  Country: FR (occurrence: FR)
  Receive Date: 20180822
  Receipt Date: 20180822
  Transmission Date: 20181010
  Serious: Yes (Other)
  Sender: FDA-Public Use
  Company Number: FR-ALLERGAN-1840785US

PATIENT
  Age: 63 Year

DRUGS (1)
  1. OZURDEX [Suspect]
     Active Substance: DEXAMETHASONE
     Indication: EYE INFLAMMATION
     Dosage: 0.7 MG, SINGLE
     Route: 031

REACTIONS (2)
  - Lens dislocation [Unknown]
  - Vitreous haemorrhage [Recovered/Resolved]
